FAERS Safety Report 11363790 (Version 1)
Quarter: 2015Q3

REPORT INFORMATION
  Report Type: Spontaneous
  Country: US (occurrence: US)
  Receive Date: 20150811
  Receipt Date: 20150811
  Transmission Date: 20151125
  Serious: Yes (Other)
  Sender: FDA-Public Use
  Company Number: US-APOTEX-2015AP011191

PATIENT

DRUGS (4)
  1. VANCOMYCIN [Concomitant]
     Active Substance: VANCOMYCIN
     Indication: PROPHYLAXIS
     Dosage: 1 DF, SINGLE
     Route: 065
  2. CLINDAMYCIN [Concomitant]
     Active Substance: CLINDAMYCIN\CLINDAMYCIN PHOSPHATE
     Indication: PROPHYLAXIS
     Dosage: 1 DF, SINGLE
     Route: 065
  3. PARACETAMOL [Concomitant]
     Active Substance: ACETAMINOPHEN
     Indication: ARTHRALGIA
     Route: 065
  4. TRANEXAMIC ACID TABLETS [Suspect]
     Active Substance: TRANEXAMIC ACID
     Indication: HIP ARTHROPLASTY
     Dosage: 10 MG/KG 1 HOUR BEFORE SURGERY
     Route: 065

REACTIONS (6)
  - Coronary artery disease [None]
  - Ventricular hypokinesia [None]
  - Coronary artery occlusion [None]
  - Left ventricular hypertrophy [None]
  - Acute myocardial infarction [Recovering/Resolving]
  - Hypotension [None]
